FAERS Safety Report 4491909-1 (Version None)
Quarter: 2004Q4

REPORT INFORMATION
  Report Type: 
  Country: None (occurrence: None)
  Receive Date: 20041103
  Receipt Date: 20041031
  Transmission Date: 20050328
  Serious: Yes (Hospitalization)
  Sender: FDA-Public Use
  Company Number: PHRM2004FR03235

PATIENT
  Age: 2 Year

DRUGS (1)
  1. LEPONEX [Suspect]
     Dosage: 100 MG, ONCE/SINGLE
     Route: 048

REACTIONS (2)
  - ACCIDENTAL EXPOSURE [None]
  - DEPRESSED LEVEL OF CONSCIOUSNESS [None]
